FAERS Safety Report 11897184 (Version 1)
Quarter: 2016Q1

REPORT INFORMATION
  Report Type: Spontaneous
  Country: EG (occurrence: EG)
  Receive Date: 20160108
  Receipt Date: 20160108
  Transmission Date: 20160526
  Serious: Yes (Life-Threatening, Hospitalization)
  Sender: FDA-Public Use
  Company Number: EG-HOSPIRA-3121834

PATIENT
  Sex: Male

DRUGS (5)
  1. CARBOPLATIN. [Suspect]
     Active Substance: CARBOPLATIN
     Indication: BLADDER CANCER
     Dosage: 1.2 G/M2, DAY 1 ONLY
     Route: 041
     Dates: start: 20151115, end: 20151207
  2. GEMZAR [Suspect]
     Active Substance: GEMCITABINE HYDROCHLORIDE
     Indication: BLADDER CANCER
     Dosage: 1.2 G/M2, DAY 1 AND DAY 8 PER 21 DAYS
     Route: 041
     Dates: start: 20151115, end: 20151207
  3. ZOFRAN [Concomitant]
     Active Substance: ONDANSETRON HYDROCHLORIDE
     Indication: PREMEDICATION
     Dosage: ONCE
     Route: 041
     Dates: start: 20151115, end: 20151207
  4. DEXTROSE. [Suspect]
     Active Substance: DEXTROSE
     Indication: PRODUCT USED FOR UNKNOWN INDICATION
     Route: 041
     Dates: start: 20151115, end: 20151207
  5. EPIDRON                            /00016002/ [Concomitant]
     Indication: PREMEDICATION
     Dosage: ONCE
     Route: 041
     Dates: start: 20151115, end: 20151207

REACTIONS (3)
  - Skin reaction [Recovered/Resolved]
  - Pancytopenia [Recovered/Resolved]
  - Haematuria [Recovered/Resolved]

NARRATIVE: CASE EVENT DATE: 20151115
